FAERS Safety Report 9660880 (Version 1)
Quarter: 2013Q4

REPORT INFORMATION
  Report Type: Spontaneous
  Country: BR (occurrence: BR)
  Receive Date: 20131031
  Receipt Date: 20131031
  Transmission Date: 20140711
  Serious: Yes (Death)
  Sender: FDA-Public Use
  Company Number: BR-PFIZER INC-2013310028

PATIENT
  Age: 26 Year
  Sex: Male
  Weight: 65 kg

DRUGS (6)
  1. SUTENT [Suspect]
     Indication: RENAL CELL CARCINOMA
     Dosage: 50 MG, CYCLIC (CYCLE 4 PER 2)
     Route: 048
     Dates: start: 20131001, end: 20131007
  2. MORPHINE [Concomitant]
  3. DRAMIN [Concomitant]
  4. NAUSEDRON [Concomitant]
  5. OMEPRAZOLE [Concomitant]
  6. LACTULONA [Concomitant]

REACTIONS (1)
  - Respiratory failure [Fatal]
